FAERS Safety Report 10064285 (Version 1)
Quarter: 2014Q2

REPORT INFORMATION
  Report Type: Spontaneous
  Country: US (occurrence: None)
  Receive Date: 20140407
  Receipt Date: 20140407
  Transmission Date: 20141212
  Serious: Yes (Disabling, Other)
  Sender: FDA-Public Use
  Company Number: None

PATIENT
  Age: 39 Year
  Sex: Female
  Weight: 75.75 kg

DRUGS (1)
  1. BOTOX [Suspect]
     Indication: SKIN COSMETIC PROCEDURE
     Dosage: 20 UNITS ONCE FOREHEAD/AROUND EYES
     Dates: start: 20140323, end: 20140323

REACTIONS (6)
  - Dizziness [None]
  - Head discomfort [None]
  - Vertigo [None]
  - Amnesia [None]
  - Depressed level of consciousness [None]
  - Anxiety [None]
